FAERS Safety Report 5164348-8 (Version None)
Quarter: 2006Q4

REPORT INFORMATION
  Report Type: 
  Country: None (occurrence: None)
  Receive Date: 20061127
  Receipt Date: 20061127
  Transmission Date: 20070319
  Serious: Yes (Hospitalization, Disabling)
  Sender: FDA-Public Use
  Company Number: None

PATIENT
  Sex: Female

DRUGS (1)
  1. ALLEGRA-D 24 180/240 MG SANOFI-AVENTIS [Suspect]
     Indication: RHINITIS ALLERGIC
     Dosage: ONE TABLET DAILY PO
     Route: 048
     Dates: start: 20061121, end: 20061121

REACTIONS (1)
  - FOREIGN BODY TRAUMA [None]
